FAERS Safety Report 15274886 (Version 2)
Quarter: 2018Q3

REPORT INFORMATION
  Report Type: Spontaneous
  Country: US (occurrence: US)
  Receive Date: 20180814
  Receipt Date: 20180917
  Transmission Date: 20181010
  Serious: No
  Sender: FDA-Public Use
  Company Number: US-SA-2018SA220480

PATIENT
  Age: 66 Year
  Sex: Female

DRUGS (1)
  1. KEVZARA [Suspect]
     Active Substance: SARILUMAB
     Indication: RHEUMATOID ARTHRITIS
     Dosage: 200 MG, QOW
     Route: 058
     Dates: start: 20180523

REACTIONS (5)
  - Injection site pruritus [Unknown]
  - Skin mass [Unknown]
  - Erythema [Unknown]
  - Injection site erythema [Unknown]
  - Pain [Unknown]

NARRATIVE: CASE EVENT DATE: 20180701
